FAERS Safety Report 4602680-4 (Version None)
Quarter: 2005Q1

REPORT INFORMATION
  Report Type: 
  Country: None (occurrence: None)
  Receive Date: 20050307
  Receipt Date: 20050224
  Transmission Date: 20050727
  Serious: Yes (Other)
  Sender: FDA-Public Use
  Company Number: 151-20785-05030012

PATIENT
  Age: 47 Year
  Sex: Male

DRUGS (5)
  1. THALIDOMIDE - PHARMION (THALIDOMIDE) (50 MILLIGRAM, CAPSULES) [Suspect]
     Indication: METASTATIC RENAL CELL CARCINOMA
     Dosage: SEE IMAGE
     Route: 048
     Dates: start: 20050214
  2. CALCIUM (CALCIUM) [Concomitant]
  3. DEXAMETHASONE [Concomitant]
  4. PANTOPRAZOLE (PANTOPRAZOLE) [Concomitant]
  5. ATENOLOL [Concomitant]

REACTIONS (2)
  - ARTHRALGIA [None]
  - DIFFICULTY IN WALKING [None]
